FAERS Safety Report 7535488-0 (Version None)
Quarter: 2011Q2

REPORT INFORMATION
  Report Type: 
  Country: None (occurrence: None)
  Receive Date: 20110609
  Receipt Date: 20110524
  Transmission Date: 20111010
  Serious: No
  Sender: FDA-Public Use
  Company Number: US-B.I. PHARMACEUTICALS,INC./RIDGEFIELD-2011-BP-13850BP

PATIENT
  Age: 88 Year
  Sex: Male

DRUGS (3)
  1. ASPIRIN [Concomitant]
     Indication: CAROTID ARTERY STENOSIS
  2. FLOMAX [Suspect]
     Indication: BENIGN PROSTATIC HYPERPLASIA
     Dosage: 0.4 MG
     Route: 048
     Dates: start: 20070101
  3. PLAVIX [Concomitant]
     Indication: CAROTID ARTERY STENOSIS

REACTIONS (1)
  - ORGASMIC SENSATION DECREASED [None]
